FAERS Safety Report 10080564 (Version 1)
Quarter: 2014Q2

REPORT INFORMATION
  Report Type: Spontaneous
  Country: AU (occurrence: None)
  Receive Date: 20140414
  Receipt Date: 20140414
  Transmission Date: 20141212
  Serious: Yes (Death, Other)
  Sender: FDA-Public Use
  Company Number: IPC201404-000160

PATIENT
  Age: 61 Year
  Sex: Female

DRUGS (2)
  1. WARFARIN [Suspect]
  2. HEPARIN (HEPARIN) (HEPARIN) [Concomitant]

REACTIONS (4)
  - Calciphylaxis [None]
  - Skin necrosis [None]
  - Cerebral infarction [None]
  - Condition aggravated [None]
